FAERS Safety Report 4772414-1 (Version None)
Quarter: 2005Q3

REPORT INFORMATION
  Report Type: 
  Country: None (occurrence: None)
  Receive Date: 20050919
  Receipt Date: 20050907
  Transmission Date: 20060218
  Serious: Yes (Hospitalization)
  Sender: FDA-Public Use
  Company Number: US-JNJFOC-20050902089

PATIENT
  Sex: Female
  Weight: 54.43 kg

DRUGS (6)
  1. REMICADE [Suspect]
     Indication: RHEUMATOID ARTHRITIS
     Route: 042
  2. MONOPRIL [Concomitant]
  3. VINOXIN [Concomitant]
  4. TOPRAL [Concomitant]
  5. ACTINAL [Concomitant]
  6. CROMIDEN [Concomitant]

REACTIONS (1)
  - NEOPLASM MALIGNANT [None]
